FAERS Safety Report 26069522 (Version 1)
Quarter: 2025Q4

REPORT INFORMATION
  Report Type: Spontaneous
  Country: US (occurrence: US)
  Receive Date: 20251120
  Receipt Date: 20251120
  Transmission Date: 20260119
  Serious: Yes (Other)
  Sender: RANBAXY
  Company Number: US-SUN PHARMACEUTICAL INDUSTRIES INC-2025R1-537312

PATIENT
  Age: 59 Year
  Sex: Female

DRUGS (4)
  1. PREDNISONE [Suspect]
     Active Substance: PREDNISONE
     Indication: Arthralgia
     Dosage: 40 MILLIGRAM, DAILY
     Route: 065
  2. PREDNISONE [Suspect]
     Active Substance: PREDNISONE
     Indication: Fatigue
  3. PREDNISONE [Suspect]
     Active Substance: PREDNISONE
     Indication: Night sweats
  4. PREDNISONE [Suspect]
     Active Substance: PREDNISONE
     Indication: Weight decreased

REACTIONS (2)
  - Therapeutic response decreased [Unknown]
  - Cushingoid [Recovered/Resolved]
